FAERS Safety Report 4574441-6 (Version None)
Quarter: 2005Q1

REPORT INFORMATION
  Report Type: 
  Country: None (occurrence: None)
  Receive Date: 20050208
  Receipt Date: 20010817
  Transmission Date: 20050727
  Serious: Yes (Hospitalization)
  Sender: FDA-Public Use
  Company Number: US-GLAXOSMITHKLINE-A0351831A

PATIENT
  Age: 36 Year
  Sex: Female
  Weight: 70.29 kg

DRUGS (1)
  1. PAXIL [Suspect]
     Indication: PREMENSTRUAL SYNDROME
     Dosage: 10MG PER DAY
     Route: 048
     Dates: start: 20000803, end: 20010101

REACTIONS (6)
  - ANXIETY [None]
  - DEPRESSION [None]
  - DRUG WITHDRAWAL SYNDROME [None]
  - DYSPNOEA [None]
  - MENTAL STATUS CHANGES [None]
  - PANIC DISORDER [None]
